FAERS Safety Report 12392330 (Version 1)
Quarter: 2016Q2

REPORT INFORMATION
  Report Type: Spontaneous
  Country: JP (occurrence: JP)
  Receive Date: 20160523
  Receipt Date: 20160523
  Transmission Date: 20160815
  Serious: Yes (Hospitalization)
  Sender: FDA-Public Use
  Company Number: JP-ORION CORPORATION ORION PHARMA-ENT 2016-0076

PATIENT
  Age: 72 Year
  Sex: Female
  Weight: 48 kg

DRUGS (12)
  1. MIRAPEX [Concomitant]
     Active Substance: PRAMIPEXOLE DIHYDROCHLORIDE
     Dosage: 0.75 MG IN MORNING
     Route: 065
     Dates: start: 20160415
  2. LOXONIN [Concomitant]
     Active Substance: LOXOPROFEN SODIUM
     Route: 065
  3. COMTAN [Suspect]
     Active Substance: ENTACAPONE
     Indication: PARKINSON^S DISEASE
     Route: 048
     Dates: start: 20160421, end: 20160423
  4. FP-OD [Interacting]
     Active Substance: SELEGILINE HYDROCHLORIDE
     Route: 048
     Dates: start: 20160418
  5. PICOSULFATE [Concomitant]
     Active Substance: SODIUM PICOSULFATE
     Route: 065
  6. FP-OD [Interacting]
     Active Substance: SELEGILINE HYDROCHLORIDE
     Route: 048
     Dates: end: 20160406
  7. FP-OD [Interacting]
     Active Substance: SELEGILINE HYDROCHLORIDE
     Dosage: 7.5 MG (5 MG IN MORNING AND 2.5 MG AT NOON)
     Route: 048
     Dates: start: 20160407, end: 20160417
  8. MIRAPEX [Concomitant]
     Active Substance: PRAMIPEXOLE DIHYDROCHLORIDE
     Dosage: 0.75 MG IN MORNING
     Route: 065
  9. MIRAPEX [Concomitant]
     Active Substance: PRAMIPEXOLE DIHYDROCHLORIDE
     Dosage: 1.5 MG IN MORNING
     Route: 065
     Dates: start: 20160414
  10. MENESIT [Concomitant]
     Active Substance: CARBIDOPA\LEVODOPA
     Route: 065
  11. MIRAPEX [Concomitant]
     Active Substance: PRAMIPEXOLE DIHYDROCHLORIDE
     Dosage: 0.75 MG IN MORNING AND 0.375 MG AT NOON
     Route: 065
     Dates: start: 20160425
  12. MENESIT [Concomitant]
     Active Substance: CARBIDOPA\LEVODOPA
     Route: 065
     Dates: start: 20160411

REACTIONS (3)
  - Drug interaction [Unknown]
  - Blood pressure increased [Recovered/Resolved]
  - Hyperhidrosis [Unknown]

NARRATIVE: CASE EVENT DATE: 20160422
